FAERS Safety Report 15698142 (Version 1)
Quarter: 2018Q4

REPORT INFORMATION
  Report Type: Spontaneous
  Country: US (occurrence: US)
  Receive Date: 20181207
  Receipt Date: 20181207
  Transmission Date: 20190205
  Serious: Yes (Life-Threatening, Hospitalization, Other)
  Sender: FDA-Public Use
  Company Number: US-LUPIN PHARMACEUTICALS INC.-2018-08348

PATIENT
  Age: 79 Year
  Sex: Male
  Weight: 152 kg

DRUGS (1)
  1. LISINOPRIL. [Suspect]
     Active Substance: LISINOPRIL
     Indication: HYPERTENSION
     Dosage: UNK
     Route: 065

REACTIONS (6)
  - Drooling [Recovered/Resolved]
  - Respiratory distress [Recovered/Resolved]
  - Pneumonia [Unknown]
  - Acute kidney injury [Unknown]
  - Angioedema [Recovered/Resolved]
  - Dysphonia [Recovered/Resolved]
